FAERS Safety Report 8807145 (Version 1)
Quarter: 2012Q4

REPORT INFORMATION
  Report Type: 
  Country: US (occurrence: US)
  Receive Date: 20120925
  Receipt Date: 20120925
  Transmission Date: 20130627
  Serious: No
  Sender: FDA-Public Use
  Company Number: US-ASTRAZENECA-2012SE71507

PATIENT
  Age: 55 Year
  Sex: Female
  Weight: 90.7 kg

DRUGS (20)
  1. SYMBICORT [Suspect]
     Indication: ASTHMA
     Route: 055
  2. SYMBICORT [Suspect]
     Indication: CHRONIC OBSTRUCTIVE PULMONARY DISEASE
     Route: 055
  3. SYMBICORT [Suspect]
     Indication: ASTHMA
     Dosage: 80/4.5 MCG 2 PUFFS
     Route: 055
     Dates: start: 20120911, end: 20120912
  4. SYMBICORT [Suspect]
     Indication: CHRONIC OBSTRUCTIVE PULMONARY DISEASE
     Dosage: 80/4.5 MCG 2 PUFFS
     Route: 055
     Dates: start: 20120911, end: 20120912
  5. SYMBICORT [Suspect]
     Indication: ASTHMA
     Route: 055
  6. SYMBICORT [Suspect]
     Indication: CHRONIC OBSTRUCTIVE PULMONARY DISEASE
     Route: 055
  7. VENTOLIN INHALER [Concomitant]
     Indication: CHRONIC OBSTRUCTIVE PULMONARY DISEASE
     Dosage: As required
     Route: 065
  8. VENTOLIN INHALER [Concomitant]
     Indication: ASTHMA
     Dosage: As required
     Route: 065
  9. MIRAPEX [Concomitant]
     Route: 048
  10. ZONISAMIDE [Concomitant]
     Indication: CHRONIC OBSTRUCTIVE PULMONARY DISEASE
     Route: 048
  11. ZONISAMIDE [Concomitant]
     Indication: ASTHMA
     Route: 048
  12. JANUVIA [Concomitant]
     Indication: DIABETES MELLITUS
     Route: 048
  13. LOSARTAN [Concomitant]
     Route: 048
  14. ZANAFLEX [Concomitant]
     Indication: BACK PAIN
     Route: 048
  15. TEGRATOL XR [Concomitant]
     Indication: CONVULSION
     Route: 048
  16. MELITONIN [Concomitant]
     Indication: SLEEP DISORDER
     Dosage: AT NIGHT
     Route: 048
  17. TRAZADONE [Concomitant]
     Route: 048
  18. PROZAC [Concomitant]
     Route: 048
  19. VOLTAREN GEL [Concomitant]
     Indication: BACK PAIN
     Dosage: TID TOPICAL
  20. VOLTAREN GEL [Concomitant]
     Indication: NECK PAIN
     Dosage: TID TOPICAL

REACTIONS (5)
  - Cough [Not Recovered/Not Resolved]
  - Sputum discoloured [Not Recovered/Not Resolved]
  - Chest pain [Not Recovered/Not Resolved]
  - Drug dose omission [Not Recovered/Not Resolved]
  - Off label use [Not Recovered/Not Resolved]
